FAERS Safety Report 18861769 (Version 1)
Quarter: 2021Q1

REPORT INFORMATION
  Report Type: Spontaneous
  Country: AU (occurrence: AU)
  Receive Date: 20210209
  Receipt Date: 20210209
  Transmission Date: 20210420
  Serious: Yes (Other)
  Sender: FDA-Public Use
  Company Number: AU-ADVANZ PHARMA-202102000808

PATIENT

DRUGS (4)
  1. MORPHINE SULPHATE [Interacting]
     Active Substance: MORPHINE SULFATE
     Dosage: UNK
  2. PROMETHAZINE [Concomitant]
     Active Substance: PROMETHAZINE HYDROCHLORIDE
     Dosage: UNK
  3. TRIFLUOPERAZINE HYDROCHLORIDE. [Interacting]
     Active Substance: TRIFLUOPERAZINE HYDROCHLORIDE
     Dosage: UNK
  4. TRANYLCYPROMINE [Suspect]
     Active Substance: TRANYLCYPROMINE
     Dosage: UNK

REACTIONS (5)
  - Unresponsive to stimuli [Unknown]
  - Loss of consciousness [Unknown]
  - Miosis [Unknown]
  - Drug interaction [Unknown]
  - Hypotension [Unknown]
